FAERS Safety Report 25849863 (Version 1)
Quarter: 2025Q3

REPORT INFORMATION
  Report Type: Spontaneous
  Country: EU (occurrence: EU)
  Receive Date: 20250926
  Receipt Date: 20250926
  Transmission Date: 20251020
  Serious: Yes (Life-Threatening)
  Sender: AUROBINDO
  Company Number: EU-AFSSAPS-PP2025000977

PATIENT
  Age: 93 Year
  Sex: Female
  Weight: 84 kg

DRUGS (7)
  1. SERTRALINE [Suspect]
     Active Substance: SERTRALINE HYDROCHLORIDE
     Indication: Anxiety disorder
     Dosage: 50 MILLIGRAM, ONCE A DAY (50 MG/J)
     Route: 048
  2. GABAPENTIN [Suspect]
     Active Substance: GABAPENTIN
     Indication: Product used for unknown indication
     Dosage: 900 MILLIGRAM, ONCE A DAY (900 MG/3 FOIS PAR J)
     Route: 048
  3. MORPHINE SULFATE [Suspect]
     Active Substance: MORPHINE SULFATE
     Indication: Pain
     Dosage: 20 MILLIGRAM, ONCE A DAY (5 MG 4 FOIS /J)
     Route: 048
     Dates: start: 20250803, end: 20250803
  4. MORPHINE HYDROCHLORIDE [Suspect]
     Active Substance: MORPHINE HYDROCHLORIDE
     Indication: Pain
     Route: 058
     Dates: start: 20250803
  5. OXAZEPAM [Suspect]
     Active Substance: OXAZEPAM
     Indication: Anxiety
     Dosage: 10 MILLIGRAM, ONCE A DAY (10 MG/J)
     Route: 048
  6. Solupred [Concomitant]
     Indication: Product used for unknown indication
     Dosage: 20 MILLIGRAM, ONCE A DAY (20 MG PAR J)
     Route: 048
     Dates: start: 20250803
  7. Propranolol arrow [Concomitant]
     Indication: Essential tremor
     Dosage: 20 MILLIGRAM, ONCE A DAY (20 MG PAR J)
     Route: 048
     Dates: start: 20250803, end: 20250803

REACTIONS (1)
  - Fall [Not Recovered/Not Resolved]

NARRATIVE: CASE EVENT DATE: 20250804
